FAERS Safety Report 9729454 (Version 2)
Quarter: 2013Q4

REPORT INFORMATION
  Report Type: Spontaneous
  Country: US (occurrence: US)
  Receive Date: 20131204
  Receipt Date: 20131204
  Transmission Date: 20140711
  Serious: Yes (Hospitalization)
  Sender: FDA-Public Use
  Company Number: US-GILEAD-2009-0021308

PATIENT
  Age: 61 Year
  Sex: Female

DRUGS (12)
  1. LETAIRIS [Suspect]
     Indication: PULMONARY ARTERIAL HYPERTENSION
     Route: 048
     Dates: start: 20080926
  2. CARDIZEM [Concomitant]
  3. BUMETAMIDE [Concomitant]
  4. LISINOPRIL [Concomitant]
  5. SPIRIVA [Concomitant]
  6. ALBUTEROL [Concomitant]
  7. LEVOXYL [Concomitant]
  8. ADVAIR [Concomitant]
  9. KADIAN [Concomitant]
  10. AMBIEN [Concomitant]
  11. NEXIUM [Concomitant]
  12. PREDNISONE [Concomitant]

REACTIONS (1)
  - Oedema [Not Recovered/Not Resolved]
